FAERS Safety Report 22536960 (Version 1)
Quarter: 2023Q2

REPORT INFORMATION
  Report Type: Spontaneous
  Country: FR (occurrence: FR)
  Receive Date: 20230608
  Receipt Date: 20230608
  Transmission Date: 20230722
  Serious: Yes (Other)
  Sender: FDA-Public Use
  Company Number: None

PATIENT
  Age: 30 Year
  Sex: Male

DRUGS (4)
  1. PREGABALIN [Suspect]
     Active Substance: PREGABALIN
     Indication: Pain
     Dosage: 300 MILLIGRAM, BID (300 MG X 2/DAY)
     Route: 048
     Dates: start: 20230425, end: 20230425
  2. CANNABIS SATIVA SUBSP. INDICA TOP [Suspect]
     Active Substance: CANNABIS SATIVA SUBSP. INDICA TOP
     Indication: Product used for unknown indication
     Dosage: UNK
     Route: 055
     Dates: start: 20230425, end: 20230425
  3. ALCOHOL [Suspect]
     Active Substance: ALCOHOL
     Indication: Pain
     Dosage: UNK
     Route: 048
     Dates: start: 20230425, end: 20230425
  4. COCAINE [Suspect]
     Active Substance: COCAINE
     Indication: Product used for unknown indication
     Dosage: 4 GRAM
     Route: 065
     Dates: start: 20230425, end: 20230425

REACTIONS (2)
  - Drug abuse [Not Recovered/Not Resolved]
  - Limb injury [Recovered/Resolved]

NARRATIVE: CASE EVENT DATE: 20230425
